FAERS Safety Report 8598567-5 (Version None)
Quarter: 2012Q3

REPORT INFORMATION
  Report Type: 
  Country: None (occurrence: None)
  Receive Date: 20120816
  Receipt Date: 20120809
  Transmission Date: 20120928
  Serious: Yes (Other)
  Sender: FDA-Public Use
  Company Number: GB-PFIZER INC-2012194174

PATIENT
  Age: 43 Year
  Sex: Male
  Weight: 90 kg

DRUGS (3)
  1. LYRICA [Suspect]
     Indication: CERVICAL ROOT PAIN
     Dosage: 100 MG, 3X/DAY
     Route: 048
     Dates: start: 20120521, end: 20120614
  2. ACETAMINOPHEN AND CODEINE PHOSPHATE [Concomitant]
     Indication: CERVICAL ROOT PAIN
     Dosage: 2 DF, UNK
     Route: 048
     Dates: start: 20091101
  3. ZOLPIDEM [Concomitant]
     Indication: INSOMNIA
     Dosage: 10 MG, 1X/DAY AT NIGHT
     Route: 048
     Dates: start: 20120515

REACTIONS (4)
  - IRRITABILITY [None]
  - VISUAL IMPAIRMENT [None]
  - AMNESIA [None]
  - DISORIENTATION [None]
